FAERS Safety Report 21597865 (Version 3)
Quarter: 2023Q1

REPORT INFORMATION
  Report Type: Report from Study
  Country: US (occurrence: US)
  Receive Date: 20221115
  Receipt Date: 20230109
  Transmission Date: 20230418
  Serious: No
  Sender: FDA-Public Use
  Company Number: US-ABBVIE-4200008

PATIENT
  Age: 71 Year
  Sex: Female

DRUGS (4)
  1. VENCLEXTA [Suspect]
     Active Substance: VENETOCLAX
     Indication: B-cell small lymphocytic lymphoma
     Dosage: FIRST ADMIN DATE 07 NOV 2022
     Route: 048
     Dates: end: 202211
  2. VENCLEXTA [Suspect]
     Active Substance: VENETOCLAX
     Indication: B-cell small lymphocytic lymphoma
     Dosage: 7 DAYS
     Route: 048
     Dates: start: 202211, end: 202211
  3. VENCLEXTA [Suspect]
     Active Substance: VENETOCLAX
     Indication: B-cell small lymphocytic lymphoma
     Dosage: 7 DAYS
     Route: 048
     Dates: start: 202211, end: 202211
  4. VENCLEXTA [Suspect]
     Active Substance: VENETOCLAX
     Indication: B-cell small lymphocytic lymphoma
     Dosage: 7 DAYS WITH FOOD
     Route: 048
     Dates: start: 202211

REACTIONS (7)
  - Dizziness [Unknown]
  - Diarrhoea [Unknown]
  - Nausea [Unknown]
  - Arthralgia [Unknown]
  - Fatigue [Unknown]
  - Rash [Recovering/Resolving]
  - Pollakiuria [Recovering/Resolving]

NARRATIVE: CASE EVENT DATE: 20221101
